FAERS Safety Report 26024364 (Version 2)
Quarter: 2025Q4

REPORT INFORMATION
  Report Type: Spontaneous
  Country: US (occurrence: US)
  Receive Date: 20251111
  Receipt Date: 20251224
  Transmission Date: 20260117
  Serious: No
  Sender: TOLMAR
  Company Number: US-Tolmar-TLM-2025-08201

PATIENT

DRUGS (2)
  1. ELIGARD [Suspect]
     Active Substance: LEUPROLIDE ACETATE
     Indication: Prostate cancer
     Dosage: DOSE NOT ADMINISTERED?BOX: 15369CUS EXP 12-2026?SYRINGE A: 15369AUS EXP 01/2027?SYRINGE B: 15369BUS
  2. DEVICE [Suspect]
     Active Substance: DEVICE
     Indication: Prostate cancer
     Dosage: DOSE NOT ADMINISTERED?BOX: 15369CUS EXP 12-2026?SYRINGE A: 15369AUS EXP 01/2027?SYRINGE B: 15369BUS

REACTIONS (4)
  - Wrong technique in product usage process [Unknown]
  - Intercepted product preparation error [Unknown]
  - Device occlusion [Unknown]
  - Device leakage [Unknown]
